FAERS Safety Report 10543299 (Version 1)
Quarter: 2014Q4

REPORT INFORMATION
  Report Type: Spontaneous
  Country: US (occurrence: None)
  Receive Date: 20141024
  Receipt Date: 20141024
  Transmission Date: 20150529
  Serious: Yes (Hospitalization)
  Sender: FDA-Public Use
  Company Number: None

PATIENT
  Age: 79 Year
  Sex: Male
  Weight: 109.1 kg

DRUGS (1)
  1. ERTAPENEM [Suspect]
     Active Substance: ERTAPENEM
     Indication: INFECTED SKIN ULCER
     Route: 042
     Dates: start: 20140814, end: 20140831

REACTIONS (3)
  - Mental status changes [None]
  - Confusional state [None]
  - Hallucination [None]

NARRATIVE: CASE EVENT DATE: 20140831
